FAERS Safety Report 5751476-9 (Version None)
Quarter: 2008Q2

REPORT INFORMATION
  Report Type: 
  Country: None (occurrence: None)
  Receive Date: 20080528
  Receipt Date: 20080509
  Transmission Date: 20081010
  Serious: Yes (Other)
  Sender: FDA-Public Use
  Company Number: PHHY2008GB07788

PATIENT

DRUGS (4)
  1. GLEEVEC [Suspect]
     Indication: CHRONIC MYELOID LEUKAEMIA
     Dosage: 400 MG, UNK
     Dates: start: 20070806, end: 20080421
  2. ALLOPURINOL [Concomitant]
     Dates: start: 20070716
  3. PEG-INTRON [Concomitant]
     Dosage: 90 UG, UNK
     Dates: start: 20070829, end: 20071213
  4. DASATINIB [Concomitant]
     Dates: start: 20080421

REACTIONS (7)
  - DRUG TOXICITY [None]
  - EYE SWELLING [None]
  - FATIGUE [None]
  - MUSCLE SPASMS [None]
  - PRURITUS [None]
  - RASH [None]
  - THERAPEUTIC RESPONSE DECREASED [None]
